FAERS Safety Report 9470090 (Version 1)
Quarter: 2013Q3

REPORT INFORMATION
  Report Type: Spontaneous
  Country: CL (occurrence: CL)
  Receive Date: 20130822
  Receipt Date: 20130822
  Transmission Date: 20140515
  Serious: Yes (Other)
  Sender: FDA-Public Use
  Company Number: CL-ASTELLAS-2013US008914

PATIENT
  Age: 28 Year
  Sex: Male

DRUGS (9)
  1. PROGRAF [Suspect]
     Indication: RENAL TRANSPLANT
     Dosage: UNK
     Route: 065
  2. MYCOPHENOLATE MOFETIL [Concomitant]
     Indication: IMMUNOSUPPRESSION
     Dosage: 2000 MG, UID/QD
     Route: 065
  3. MYCOPHENOLATE MOFETIL [Concomitant]
     Dosage: UNK
     Route: 065
  4. METRONIDAZOL                       /00012501/ [Concomitant]
     Indication: INFECTION
     Dosage: UNK
     Route: 065
  5. CIPROFLOXACIN [Concomitant]
     Indication: INFECTION
     Dosage: UNK
     Route: 065
  6. CEFTRIAXONE [Concomitant]
     Indication: INFECTION
     Dosage: UNK
     Route: 065
  7. CYCLOSPORINE [Concomitant]
     Indication: IMMUNOSUPPRESSION
     Dosage: UNK
     Route: 065
  8. METHYLPREDNISOLONE [Concomitant]
     Indication: KIDNEY TRANSPLANT REJECTION
     Dosage: 1 G, FOR 3 DAYS
     Route: 065
  9. METHYLPREDNISOLONE [Concomitant]
     Dosage: 10 MG, UID/QD
     Route: 065

REACTIONS (1)
  - Histiocytosis haematophagic [Recovered/Resolved]
